FAERS Safety Report 11610639 (Version 1)
Quarter: 2015Q4

REPORT INFORMATION
  Report Type: Spontaneous
  Country: US (occurrence: US)
  Receive Date: 20151008
  Receipt Date: 20151008
  Transmission Date: 20160304
  Serious: No
  Sender: FDA-Public Use
  Company Number: US-ASTRAZENECA-2015SE94246

PATIENT

DRUGS (1)
  1. MOVANTIK [Suspect]
     Active Substance: NALOXEGOL OXALATE
     Dosage: DOSE UNKNOWN
     Route: 048

REACTIONS (3)
  - Gastrointestinal haemorrhage [Unknown]
  - Ulcer [Unknown]
  - Haematochezia [Unknown]
